FAERS Safety Report 18936660 (Version 1)
Quarter: 2021Q1

REPORT INFORMATION
  Report Type: Spontaneous
  Country: US (occurrence: US)
  Receive Date: 20210225
  Receipt Date: 20210225
  Transmission Date: 20210420
  Serious: No
  Sender: FDA-Public Use
  Company Number: US-ASTRAZENECA-2021A068462

PATIENT
  Sex: Female

DRUGS (1)
  1. TAGRISSO [Suspect]
     Active Substance: OSIMERTINIB
     Indication: ADENOCARCINOMA
     Route: 048

REACTIONS (11)
  - Alopecia [Unknown]
  - Injury [Recovered/Resolved]
  - Dry mouth [Unknown]
  - Loss of consciousness [Unknown]
  - Fall [Unknown]
  - Ear disorder [Unknown]
  - Stomatitis [Unknown]
  - Muscle spasms [Unknown]
  - Pollakiuria [Unknown]
  - Rash [Unknown]
  - Oral pain [Unknown]
